FAERS Safety Report 10053400 (Version 1)
Quarter: 2014Q2

REPORT INFORMATION
  Report Type: Spontaneous
  Country: GB (occurrence: GB)
  Receive Date: 20140402
  Receipt Date: 20140402
  Transmission Date: 20141212
  Serious: Yes (Other)
  Sender: FDA-Public Use
  Company Number: GB-TEVA-470102ISR

PATIENT
  Age: 74 Year
  Sex: Female
  Weight: 74 kg

DRUGS (5)
  1. LANSOPRAZOLE [Suspect]
     Indication: GASTROOESOPHAGEAL REFLUX DISEASE
     Dosage: 30 MILLIGRAM DAILY;
     Route: 048
     Dates: start: 20140206, end: 20140213
  2. GAVISCON [Concomitant]
  3. LAMOTRIGINE [Concomitant]
     Dosage: 175 MILLIGRAM DAILY; 75 MG EVERY MORNING, 100 MG EVERY NIGHT.
  4. LEVOTHYROXINE [Concomitant]
     Dosage: 25 MICROGRAM DAILY;
  5. SIMVASTATIN [Concomitant]
     Dosage: 40 MILLIGRAM DAILY; EVERY NIGHT.

REACTIONS (5)
  - Liver function test abnormal [Recovering/Resolving]
  - Malaise [Not Recovered/Not Resolved]
  - Fatigue [Not Recovered/Not Resolved]
  - Lethargy [Not Recovered/Not Resolved]
  - Decreased appetite [Not Recovered/Not Resolved]
